FAERS Safety Report 6082176-6 (Version None)
Quarter: 2009Q1

REPORT INFORMATION
  Report Type: 
  Country: None (occurrence: None)
  Receive Date: 20090218
  Receipt Date: 20090213
  Transmission Date: 20090719
  Serious: Yes (Death, Hospitalization)
  Sender: FDA-Public Use
  Company Number: A0767692A

PATIENT
  Age: 72 Year
  Sex: Male

DRUGS (5)
  1. ADVAIR DISKUS 100/50 [Suspect]
     Indication: DRUG USE FOR UNKNOWN INDICATION
     Route: 055
     Dates: start: 20081217, end: 20090208
  2. VENTOLIN [Suspect]
     Indication: DRUG USE FOR UNKNOWN INDICATION
     Dosage: 90MCG AS REQUIRED
     Route: 055
     Dates: start: 20081217, end: 20090208
  3. NIFEDIPINE [Concomitant]
  4. METOPROLOL TARTRATE [Concomitant]
  5. TOPROL-XL [Concomitant]

REACTIONS (3)
  - ANEURYSM [None]
  - OESOPHAGEAL DISORDER [None]
  - OESOPHAGEAL OBSTRUCTION [None]
